FAERS Safety Report 15965363 (Version 1)
Quarter: 2019Q1

REPORT INFORMATION
  Report Type: Spontaneous
  Country: FR (occurrence: FR)
  Receive Date: 20190215
  Receipt Date: 20190215
  Transmission Date: 20190418
  Serious: Yes (Hospitalization, Other)
  Sender: FDA-Public Use
  Company Number: FR-BRISTOL-MYERS SQUIBB COMPANY-BMS-2019-011799

PATIENT
  Age: 70 Year
  Sex: Female
  Weight: 67 kg

DRUGS (1)
  1. SPRYCEL [Suspect]
     Active Substance: DASATINIB
     Indication: CHRONIC MYELOID LEUKAEMIA
     Dosage: 70 MG, 1 DAY
     Route: 048
     Dates: start: 201810, end: 201901

REACTIONS (1)
  - Haemolytic anaemia [Recovering/Resolving]

NARRATIVE: CASE EVENT DATE: 20181219
